FAERS Safety Report 9056662 (Version 3)
Quarter: 2013Q1

REPORT INFORMATION
  Report Type: Spontaneous
  Country: PH (occurrence: PH)
  Receive Date: 20130204
  Receipt Date: 20130321
  Transmission Date: 20140127
  Serious: Yes (Other)
  Sender: FDA-Public Use
  Company Number: PH-PFIZER INC-2013032582

PATIENT
  Age: 64 Year
  Sex: Female

DRUGS (4)
  1. TYGACIL [Suspect]
     Indication: GROIN ABSCESS
  2. LYRICA [Concomitant]
  3. CELEBREX [Concomitant]
     Indication: ARTHRITIS
  4. MORPHINE SULFATE [Concomitant]

REACTIONS (1)
  - Drug resistance [Unknown]
